FAERS Safety Report 8099944-1 (Version None)
Quarter: 2012Q1

REPORT INFORMATION
  Report Type: 
  Country: None (occurrence: None)
  Receive Date: 20120129
  Receipt Date: 20111214
  Transmission Date: 20120608
  Serious: No
  Sender: FDA-Public Use
  Company Number: US-ABBOTT-11P-163-0878360-00

PATIENT
  Age: 65 Year
  Sex: Female

DRUGS (6)
  1. KLOR-CON [Concomitant]
     Indication: PRODUCT USED FOR UNKNOWN INDICATION
  2. LASIX [Concomitant]
     Indication: DIURETIC THERAPY
  3. HUMIRA [Suspect]
     Indication: PSORIATIC ARTHROPATHY
     Dates: start: 20111123
  4. DICLOFENAC [Concomitant]
     Indication: ARTHRITIS
  5. FOSAMAX [Concomitant]
     Indication: OSTEOPOROSIS
  6. LISINOPRIL [Concomitant]
     Indication: BLOOD PRESSURE INCREASED

REACTIONS (4)
  - ABNORMAL FAECES [None]
  - DYSPNOEA EXERTIONAL [None]
  - DYSPNOEA [None]
  - INJECTION SITE PAIN [None]
